FAERS Safety Report 5515094-X (Version None)
Quarter: 2007Q4

REPORT INFORMATION
  Report Type: 
  Country: None (occurrence: None)
  Receive Date: 20071113
  Receipt Date: 20061228
  Transmission Date: 20080405
  Serious: No
  Sender: FDA-Public Use
  Company Number: A0632861A

PATIENT
  Age: 48 Year
  Sex: Female

DRUGS (6)
  1. COREG [Suspect]
     Indication: HYPERTENSION
     Dosage: 6.25MG TWICE PER DAY
     Route: 048
     Dates: start: 20061101
  2. VESICARE [Suspect]
     Dosage: 5MG AT NIGHT
     Route: 048
     Dates: start: 20061216
  3. LIPITOR [Concomitant]
  4. DULCOLAX [Concomitant]
  5. AMBIEN [Concomitant]
  6. VITAMINS [Concomitant]

REACTIONS (6)
  - CONSTIPATION [None]
  - DRY MOUTH [None]
  - HYPERTENSION [None]
  - OEDEMA PERIPHERAL [None]
  - ORTHOSTATIC HYPOTENSION [None]
  - PHARYNGOLARYNGEAL PAIN [None]
